FAERS Safety Report 10407481 (Version 13)
Quarter: 2015Q2

REPORT INFORMATION
  Report Type: Spontaneous
  Country: IE (occurrence: IE)
  Receive Date: 20140825
  Receipt Date: 20150423
  Transmission Date: 20150821
  Serious: Yes (Hospitalization, Disabling, Other)
  Sender: FDA-Public Use
  Company Number: PHFR2014IE005809

PATIENT
  Age: 60 Year
  Sex: Female
  Weight: 51.65 kg

DRUGS (38)
  1. CLOZARIL [Suspect]
     Active Substance: CLOZAPINE
     Dosage: 150 MG, NOCTE
     Route: 048
     Dates: start: 20140629
  2. CLOZARIL [Suspect]
     Active Substance: CLOZAPINE
     Dosage: UNK
     Route: 048
     Dates: start: 20140827
  3. AMISULPRIDE [Suspect]
     Active Substance: AMISULPRIDE
     Indication: PSYCHOTIC DISORDER
     Dosage: 100 MG, BID (FOR PSYCHOSIS)
     Route: 065
  4. CALCICHEW D3 FORTE [Concomitant]
     Active Substance: CALCIUM\CHOLECALCIFEROL
     Indication: BONE DISORDER
     Dosage: MANE
     Route: 065
  5. AKINETON [Concomitant]
     Active Substance: BIPERIDEN HYDROCHLORIDE
     Indication: TREMOR
     Dosage: 2 MG, BID
     Route: 065
  6. CLOZARIL [Suspect]
     Active Substance: CLOZAPINE
     Dosage: 37.5 MG, (12.5 MG MANE AND 25 MG NOCTE)
     Route: 048
     Dates: start: 20140613
  7. CLOZARIL [Suspect]
     Active Substance: CLOZAPINE
     Dosage: UNK
     Route: 048
     Dates: start: 20140826
  8. FUCIDINE [Concomitant]
     Active Substance: FUSIDIC ACID
     Indication: SKIN INFECTION
     Dosage: 1 DF, QID
     Route: 065
  9. CLOZARIL [Suspect]
     Active Substance: CLOZAPINE
     Dosage: 75 MG, NOCTE
     Route: 048
     Dates: start: 20140618
  10. CLOZARIL [Suspect]
     Active Substance: CLOZAPINE
     Dosage: 50 MG, BID
     Route: 048
     Dates: start: 20140725
  11. CLOZARIL [Suspect]
     Active Substance: CLOZAPINE
     Dosage: 300 MG, QD
     Route: 048
     Dates: start: 20140816, end: 20140820
  12. CARBAMAZEPINE. [Concomitant]
     Active Substance: CARBAMAZEPINE
     Indication: AFFECTIVE DISORDER
     Dosage: 600 MG, UNK
     Route: 048
     Dates: start: 201406, end: 201407
  13. CHLORHEXIDINE [Concomitant]
     Active Substance: CHLORHEXIDINE
     Indication: DENTAL DISORDER PROPHYLAXIS
     Dosage: 10 ML, QID
     Route: 065
  14. CLOZARIL [Suspect]
     Active Substance: CLOZAPINE
     Dosage: 125 MG, NOCTE
     Route: 048
     Dates: start: 20140623
  15. CLOZARIL [Suspect]
     Active Substance: CLOZAPINE
     Dosage: 75 MG, MANE
     Route: 048
     Dates: start: 20140619
  16. CLOZARIL [Suspect]
     Active Substance: CLOZAPINE
     Dosage: 300 MG (200 MG NOCTE (NIGHT) AND 50 MG BD (TWICE A DAY) (HELD)
     Route: 048
     Dates: start: 20140821
  17. CLOZARIL [Suspect]
     Active Substance: CLOZAPINE
     Dosage: 50 MG, TID (DISCONTINUED/ HELD)
     Route: 048
     Dates: start: 20140822, end: 20140822
  18. QUETIAPINE XR [Concomitant]
     Active Substance: QUETIAPINE
     Indication: PSYCHOTIC DISORDER
  19. CLOZARIL [Suspect]
     Active Substance: CLOZAPINE
     Dosage: 12.5 MG, BID
     Route: 048
     Dates: start: 20140612
  20. CLOZARIL [Suspect]
     Active Substance: CLOZAPINE
     Dosage: 25 MG, BID
     Route: 048
     Dates: start: 20140614
  21. CLOZARIL [Suspect]
     Active Substance: CLOZAPINE
     Dosage: 75 MG, (25 MG MANE AND 50 MG NOCTE)
     Route: 048
     Dates: start: 20140615
  22. CLOZARIL [Suspect]
     Active Substance: CLOZAPINE
     Dosage: 175 MG, BID
     Route: 048
     Dates: start: 20140825
  23. CLINDAMYCIN [Suspect]
     Active Substance: CLINDAMYCIN\CLINDAMYCIN PHOSPHATE
     Indication: ABSCESS
     Route: 065
  24. CLONAZEPAM. [Concomitant]
     Active Substance: CLONAZEPAM
     Indication: ANXIETY
     Dosage: 0.5 MG, UNK
     Route: 048
     Dates: start: 201405
  25. QUETIAPINE XR [Concomitant]
     Active Substance: QUETIAPINE
     Indication: SCHIZOPHRENIA
     Dosage: 400 MG, UNK (100 TO 400 MG)
     Route: 048
     Dates: start: 201405, end: 201406
  26. LORAZEPAM. [Concomitant]
     Active Substance: LORAZEPAM
     Indication: ANXIETY
     Dosage: 2 MG, TID (PRN)
     Route: 065
  27. CLOZARIL [Suspect]
     Active Substance: CLOZAPINE
     Indication: SCHIZOPHRENIA
     Dosage: 12.5 MG, NOCTE
     Route: 048
     Dates: start: 20140611
  28. CLOZARIL [Suspect]
     Active Substance: CLOZAPINE
     Dosage: 50 MG, MANE
     Route: 048
     Dates: start: 20140617
  29. CLOZARIL [Suspect]
     Active Substance: CLOZAPINE
     Dosage: 100 MG, MANE
     Route: 048
     Dates: start: 20140625
  30. AMISULPRIDE [Suspect]
     Active Substance: AMISULPRIDE
     Indication: ABSCESS
     Route: 065
  31. DUPHALAC                           /01526201/ [Concomitant]
     Indication: CONSTIPATION
     Dosage: 15 ML, BID
     Route: 065
  32. ACE//PARACETAMOL [Concomitant]
     Active Substance: ACETAMINOPHEN
     Indication: PAIN
     Dosage: 1 G, QID (QDS, PRN)
     Route: 065
  33. FLUCONAZOLE. [Concomitant]
     Active Substance: FLUCONAZOLE
     Indication: ORAL CANDIDIASIS
     Dosage: 40 MG, QD
  34. CLOZARIL [Suspect]
     Active Substance: CLOZAPINE
     Dosage: 100 MG, NOCTE
     Route: 048
     Dates: start: 20140620
  35. CLOZARIL [Suspect]
     Active Substance: CLOZAPINE
     Dosage: 200 MG, NOCTE
     Route: 048
     Dates: start: 20140716
  36. CLONAZEPAM. [Concomitant]
     Active Substance: CLONAZEPAM
     Indication: OSTEOPOROSIS
     Dosage: 0.25 MG, BID
     Route: 048
  37. HALOPERIDOL. [Concomitant]
     Active Substance: HALOPERIDOL
     Indication: ACUTE PSYCHOSIS
     Dosage: 5 MG, QD
     Route: 048
     Dates: start: 201407, end: 201410
  38. MOVICOL [Concomitant]
     Active Substance: POLYETHYLENE GLYCOL 3350\POTASSIUM CHLORIDE\SODIUM BICARBONATE\SODIUM CHLORIDE
     Indication: CONSTIPATION
     Dosage: TBD
     Route: 065

REACTIONS (7)
  - Neutropenia [Recovered/Resolved]
  - Mental impairment [Recovered/Resolved with Sequelae]
  - Leukopenia [Recovered/Resolved]
  - Infection [Recovered/Resolved]
  - Staphylococcal infection [Recovered/Resolved]
  - Abscess [Recovered/Resolved]
  - Schizophrenia [Not Recovered/Not Resolved]

NARRATIVE: CASE EVENT DATE: 20140816
